FAERS Safety Report 21360840 (Version 1)
Quarter: 2022Q3

REPORT INFORMATION
  Report Type: Spontaneous
  Country: US (occurrence: US)
  Receive Date: 20220921
  Receipt Date: 20220921
  Transmission Date: 20221027
  Serious: No
  Sender: FDA-Public Use
  Company Number: US-009507513-2209USA004468

PATIENT
  Sex: Female

DRUGS (1)
  1. KEYTRUDA [Suspect]
     Active Substance: PEMBROLIZUMAB
     Indication: Ovarian cancer
     Dosage: UNKNOWN BY REPORTER/ EVERY 3 WEEKS
     Route: 042
     Dates: end: 202207

REACTIONS (2)
  - Abdominal lymphadenopathy [Unknown]
  - Drug ineffective for unapproved indication [Unknown]
